FAERS Safety Report 12174606 (Version 2)
Quarter: 2016Q1

REPORT INFORMATION
  Report Type: Spontaneous
  Country: US (occurrence: US)
  Receive Date: 20160312
  Receipt Date: 20160315
  Transmission Date: 20160526
  Serious: Yes (Death, Hospitalization)
  Sender: FDA-Public Use
  Company Number: US-AUROBINDO-AUR-APL-2016-03267

PATIENT
  Age: 88 Year
  Sex: Female

DRUGS (7)
  1. MEMANTINE. [Suspect]
     Active Substance: MEMANTINE
     Indication: AGITATION
  2. LORAZEPAM. [Suspect]
     Active Substance: LORAZEPAM
     Indication: AGITATION
     Route: 065
  3. MEMANTINE. [Suspect]
     Active Substance: MEMANTINE
     Indication: CONFUSIONAL STATE
     Route: 065
  4. LORAZEPAM. [Suspect]
     Active Substance: LORAZEPAM
     Indication: CONFUSIONAL STATE
  5. HALOPERIDOL. [Suspect]
     Active Substance: HALOPERIDOL
     Indication: AGITATION
  6. FLEXERIL [Suspect]
     Active Substance: CYCLOBENZAPRINE HYDROCHLORIDE
     Indication: MUSCLE RELAXANT THERAPY
     Dosage: UNK UNK, 3 TIMES A DAY
     Route: 065
  7. HALOPERIDOL. [Suspect]
     Active Substance: HALOPERIDOL
     Indication: CONFUSIONAL STATE
     Route: 065

REACTIONS (13)
  - Nausea [Unknown]
  - Condition aggravated [Unknown]
  - Nosocomial infection [Fatal]
  - Confusional state [Unknown]
  - Delirium [Unknown]
  - Joint stiffness [Unknown]
  - Joint swelling [Unknown]
  - Hallucination [Unknown]
  - Toxicity to various agents [Unknown]
  - Dehydration [Unknown]
  - Lethargy [Unknown]
  - Gout [Unknown]
  - Arthralgia [Unknown]
